FAERS Safety Report 15886141 (Version 2)
Quarter: 2019Q1

REPORT INFORMATION
  Report Type: Spontaneous
  Country: AR (occurrence: AR)
  Receive Date: 20190129
  Receipt Date: 20190204
  Transmission Date: 20190417
  Serious: Yes (Hospitalization, Other)
  Sender: FDA-Public Use
  Company Number: AR-PFIZER INC-2019035239

PATIENT
  Age: 54 Year
  Sex: Female

DRUGS (6)
  1. SERTRALINA ACTAVIS [Concomitant]
     Active Substance: SERTRALINE HYDROCHLORIDE
     Dosage: 20 MG, DAILY
  2. PREDNISONA [Concomitant]
     Active Substance: PREDNISONE
     Dosage: 5 MG, DAILY
  3. PANTOPRAZOL +PHARMA [Concomitant]
     Dosage: 40 MG, DAILY
  4. FOLIC ACID. [Concomitant]
     Active Substance: FOLIC ACID
     Dosage: 5 MG, DAILY
  5. METHOTREXATE. [Concomitant]
     Active Substance: METHOTREXATE
     Dosage: 15 MG, DAILY
     Dates: end: 20190120
  6. XELJANZ XR [Suspect]
     Active Substance: TOFACITINIB CITRATE
     Indication: RHEUMATOID ARTHRITIS
     Dosage: 11 MG, DAILY
     Dates: start: 20180803, end: 20190120

REACTIONS (4)
  - Pulmonary tuberculosis [Recovering/Resolving]
  - Aphasia [Recovered/Resolved]
  - Pneumonia [Recovered/Resolved]
  - Nervous system disorder [Recovering/Resolving]

NARRATIVE: CASE EVENT DATE: 201809
